FAERS Safety Report 5852254-2 (Version None)
Quarter: 2008Q3

REPORT INFORMATION
  Report Type: 
  Country: None (occurrence: None)
  Receive Date: 20080821
  Receipt Date: 20080813
  Transmission Date: 20090109
  Serious: Yes (Hospitalization)
  Sender: FDA-Public Use
  Company Number: GB-NOVOPROD-278258

PATIENT
  Sex: Female

DRUGS (3)
  1. NOVORAPID [Suspect]
     Indication: TYPE 1 DIABETES MELLITUS
     Dosage: 12 IU, QD
     Route: 058
  2. NOVORAPID [Suspect]
  3. LANTUS [Suspect]
     Indication: TYPE 1 DIABETES MELLITUS
     Dosage: 25 IU, QD
     Route: 058

REACTIONS (2)
  - ANXIETY [None]
  - IMPAIRED GASTRIC EMPTYING [None]
